FAERS Safety Report 6612254-1 (Version None)
Quarter: 2010Q1

REPORT INFORMATION
  Report Type: 
  Country: None (occurrence: None)
  Receive Date: 20100223
  Receipt Date: 20100202
  Transmission Date: 20100710
  Serious: No
  Sender: FDA-Public Use
  Company Number: 2010-00216

PATIENT
  Sex: Male
  Weight: 78.0187 kg

DRUGS (1)
  1. ZICAM COLD REMEDY ZAVORS [Suspect]
     Dosage: EVERY 3 HOURS, 1 DAY
     Dates: start: 20100129, end: 20100130

REACTIONS (1)
  - AGEUSIA [None]
